FAERS Safety Report 9192196 (Version 1)
Quarter: 2013Q1

REPORT INFORMATION
  Report Type: Spontaneous
  Country: BE (occurrence: BE)
  Receive Date: 20130327
  Receipt Date: 20130327
  Transmission Date: 20140127
  Serious: Yes (Death)
  Sender: FDA-Public Use
  Company Number: BE-JNJFOC-20130307932

PATIENT
  Sex: Male

DRUGS (4)
  1. INFLIXIMAB, RECOMBINANT [Suspect]
     Indication: AMYLOIDOSIS
     Route: 042
  2. INFLIXIMAB, RECOMBINANT [Suspect]
     Indication: CROHN^S DISEASE
     Route: 042
  3. AMINOSALICYLIC ACID [Suspect]
     Indication: AMYLOIDOSIS
     Route: 065
  4. AMINOSALICYLIC ACID [Suspect]
     Indication: CROHN^S DISEASE
     Route: 065

REACTIONS (2)
  - Multi-organ failure [Fatal]
  - Sepsis [Fatal]
